FAERS Safety Report 4991676-9 (Version None)
Quarter: 2006Q2

REPORT INFORMATION
  Report Type: 
  Country: None (occurrence: None)
  Receive Date: 20060504
  Receipt Date: 20060425
  Transmission Date: 20061013
  Serious: Yes (Hospitalization, Other)
  Sender: FDA-Public Use
  Company Number: PHNU2006DE01766

PATIENT
  Sex: Male

DRUGS (3)
  1. SANDIMMUNE [Suspect]
     Indication: RENAL TRANSPLANT
  2. DECORTIN [Concomitant]
  3. SANDIMMUNE [Suspect]
     Indication: RENAL TRANSPLANT
     Route: 048

REACTIONS (2)
  - COMPLICATIONS OF TRANSPLANTED KIDNEY [None]
  - RECTAL CANCER [None]
